FAERS Safety Report 19267226 (Version 3)
Quarter: 2021Q2

REPORT INFORMATION
  Report Type: Spontaneous
  Country: NP (occurrence: NP)
  Receive Date: 20210517
  Receipt Date: 20210615
  Transmission Date: 20210717
  Serious: Yes (Hospitalization, Other)
  Sender: FDA-Public Use
  Company Number: NVSC2021NP053132

PATIENT
  Age: 27 Year
  Sex: Male

DRUGS (1)
  1. GLIVEC [Suspect]
     Active Substance: IMATINIB MESYLATE
     Indication: CHRONIC MYELOID LEUKAEMIA
     Dosage: 600 MG (6 X 100 MG TABLETS)
     Route: 065

REACTIONS (5)
  - Dyspnoea [Unknown]
  - COVID-19 [Unknown]
  - Therapy non-responder [Unknown]
  - Gastritis [Unknown]
  - Haematochezia [Unknown]

NARRATIVE: CASE EVENT DATE: 20210503
